FAERS Safety Report 25110154 (Version 2)
Quarter: 2025Q1

REPORT INFORMATION
  Report Type: Spontaneous
  Country: US (occurrence: US)
  Receive Date: 20250324
  Receipt Date: 20250324
  Transmission Date: 20250408
  Serious: No
  Sender: BRISTOL-MYERS SQUIBB COMPANY
  Company Number: US-BRISTOL-MYERS SQUIBB COMPANY-2025-042953

PATIENT
  Age: 67 Year
  Sex: Female

DRUGS (2)
  1. ELIQUIS [Suspect]
     Active Substance: APIXABAN
     Indication: Product used for unknown indication
     Dates: start: 202406
  2. ALECTINIB [Suspect]
     Active Substance: ALECTINIB
     Indication: Product used for unknown indication

REACTIONS (1)
  - Rash [Not Recovered/Not Resolved]
